FAERS Safety Report 6671002-X (Version None)
Quarter: 2010Q2

REPORT INFORMATION
  Report Type: 
  Country: None (occurrence: None)
  Receive Date: 20100407
  Receipt Date: 20100326
  Transmission Date: 20101027
  Serious: Yes (Other)
  Sender: FDA-Public Use
  Company Number: PHHY2009FR59934

PATIENT
  Sex: Male
  Weight: 80 kg

DRUGS (6)
  1. ACLASTA [Suspect]
     Indication: OSTEOPOROSIS
     Dosage: UNK
     Dates: start: 20091001
  2. CORTANCYL [Concomitant]
     Indication: RHEUMATOID ARTHRITIS
     Dosage: 20 MG DAILY
     Dates: start: 20080101
  3. DAFALGAN CODEINE [Concomitant]
     Indication: RHEUMATOID ARTHRITIS
     Dosage: 3 G DAILY
     Dates: start: 20050101
  4. SERETIDE [Concomitant]
     Indication: CHRONIC OBSTRUCTIVE PULMONARY DISEASE
     Dosage: 500 UG, BID
     Dates: start: 20060101
  5. PREVISCAN [Concomitant]
     Indication: ATRIAL FIBRILLATION
     Dosage: 1 DF DAILY
     Dates: start: 20090101
  6. SOTALOL HCL [Concomitant]
     Indication: ATRIAL FIBRILLATION
     Dosage: UNK
     Dates: start: 20090101

REACTIONS (7)
  - ERYTHEMA [None]
  - ORAL DISORDER [None]
  - OSTEONECROSIS [None]
  - PAIN IN EXTREMITY [None]
  - PAIN IN JAW [None]
  - RHEUMATOID ARTHRITIS [None]
  - SWELLING [None]
